FAERS Safety Report 9482399 (Version 3)
Quarter: 2013Q4

REPORT INFORMATION
  Report Type: Spontaneous
  Country: JP (occurrence: JP)
  Receive Date: 20130828
  Receipt Date: 20131007
  Transmission Date: 20140711
  Serious: Yes (Other)
  Sender: FDA-Public Use
  Company Number: JP-PFIZER INC-2013242859

PATIENT
  Age: 44 Year
  Sex: Female

DRUGS (1)
  1. VIBRAMYCIN [Suspect]
     Indication: ACNE
     Route: 048

REACTIONS (1)
  - Oesophageal candidiasis [Unknown]
